FAERS Safety Report 5296187-1 (Version None)
Quarter: 2007Q2

REPORT INFORMATION
  Report Type: 
  Country: None (occurrence: None)
  Receive Date: 20070413
  Receipt Date: 20070410
  Transmission Date: 20071010
  Serious: Yes (Other)
  Sender: FDA-Public Use
  Company Number: US-GLAXOSMITHKLINE-A0646633A

PATIENT
  Sex: Female

DRUGS (7)
  1. COREG [Suspect]
     Indication: HYPERTENSION
     Dosage: 25MG PER DAY
     Route: 048
  2. FOSAMAX [Concomitant]
  3. LIPITOR [Concomitant]
  4. PREVACID [Concomitant]
  5. LEVOXYL [Concomitant]
  6. CELEBREX [Concomitant]
  7. PROZAC [Concomitant]

REACTIONS (12)
  - BACK DISORDER [None]
  - DRUG INEFFECTIVE [None]
  - EPISTAXIS [None]
  - FALL [None]
  - FATIGUE [None]
  - HYPERTENSION [None]
  - MOUTH INJURY [None]
  - SWELLING FACE [None]
  - SYNCOPE [None]
  - TINNITUS [None]
  - TOOTH FRACTURE [None]
  - WRONG TECHNIQUE IN DRUG USAGE PROCESS [None]
